FAERS Safety Report 8198258-9 (Version None)
Quarter: 2012Q1

REPORT INFORMATION
  Report Type: 
  Country: None (occurrence: None)
  Receive Date: 20120309
  Receipt Date: 20111221
  Transmission Date: 20120608
  Serious: No
  Sender: FDA-Public Use
  Company Number: US-AMGEN-USASP2011068228

PATIENT
  Age: 68 Year
  Sex: Female

DRUGS (4)
  1. DIGESTIVE ENZYME [Concomitant]
  2. CALCIUM [Concomitant]
  3. PREMARIN [Concomitant]
  4. PROLIA [Suspect]
     Indication: OSTEOPOROSIS POSTMENOPAUSAL
     Dosage: 60 MG, Q6MO
     Dates: start: 20111216

REACTIONS (3)
  - FEELING ABNORMAL [None]
  - CHEST DISCOMFORT [None]
  - DIZZINESS [None]
